FAERS Safety Report 22595426 (Version 1)
Quarter: 2023Q2

REPORT INFORMATION
  Report Type: Spontaneous
  Country: US (occurrence: None)
  Receive Date: 20230612
  Receipt Date: 20230612
  Transmission Date: 20230722
  Serious: Yes (Hospitalization, Other)
  Sender: FDA-Public Use
  Company Number: None

PATIENT
  Age: 53 Year
  Sex: Male
  Weight: 93.6 kg

DRUGS (1)
  1. VANCOMYCIN [Suspect]
     Active Substance: VANCOMYCIN
     Indication: Bacteraemia
     Dosage: OTHER FREQUENCY : 3 TIMES A WEEK;?
     Route: 041
     Dates: start: 20230606, end: 20230606

REACTIONS (2)
  - Dialysis [None]
  - Drug hypersensitivity [None]

NARRATIVE: CASE EVENT DATE: 20230606
